FAERS Safety Report 4470082-X (Version None)
Quarter: 2004Q3

REPORT INFORMATION
  Report Type: 
  Country: None (occurrence: None)
  Receive Date: 20040910
  Receipt Date: 20040624
  Transmission Date: 20050211
  Serious: No
  Sender: FDA-Public Use
  Company Number: 2004221158US

PATIENT
  Age: 40 Year
  Sex: Male

DRUGS (1)
  1. BEXTRA [Suspect]
     Indication: ARTHRALGIA

REACTIONS (2)
  - COLD SWEAT [None]
  - NAUSEA [None]
